FAERS Safety Report 19277206 (Version 1)
Quarter: 2021Q2

REPORT INFORMATION
  Report Type: Spontaneous
  Country: JP (occurrence: JP)
  Receive Date: 20210520
  Receipt Date: 20210520
  Transmission Date: 20210717
  Serious: Yes (Other)
  Sender: FDA-Public Use
  Company Number: JP-ASTRAZENECA-2021A423832

PATIENT
  Age: 68 Year
  Sex: Female
  Weight: 58 kg

DRUGS (12)
  1. SOLDEM 3A [Concomitant]
     Active Substance: CARBOHYDRATES\POTASSIUM CHLORIDE\SODIUM CHLORIDE\SODIUM LACTATE
     Dosage: UNKNOWN DOSE AND FREQUENCY
     Route: 041
  2. POTASSIUM CHLORIDE. [Concomitant]
     Active Substance: POTASSIUM CHLORIDE
     Dosage: UNKNOWN DOSE AND FREQUENCY
     Route: 041
     Dates: start: 20190528, end: 20190530
  3. NIFEDIPINE. [Concomitant]
     Active Substance: NIFEDIPINE
     Dosage: UNKNOWN DOSE AND FREQUENCY
     Route: 048
  4. SYMBICORT [Suspect]
     Active Substance: BUDESONIDE\FORMOTEROL FUMARATE DIHYDRATE
     Indication: ASTHMA
     Dosage: 4 DOSAGE FORM TWO TIMES A DAY
     Route: 055
     Dates: start: 20190530
  5. LIXIANA OD [Concomitant]
     Active Substance: EDOXABAN TOSYLATE
     Dosage: UNKNOWN DOSE AND FREQUENCY
     Route: 048
  6. RINDERON [Concomitant]
     Dosage: UNKNOWN DOSE AND FREQUENCY
     Route: 042
     Dates: start: 20190527, end: 20190530
  7. MAGNESIUM SULFATE. [Concomitant]
     Active Substance: MAGNESIUM SULFATE
     Dosage: UNKNOWN DOSE AND FREQUENCY
     Route: 042
  8. L?CARBOCISTEINE [Concomitant]
     Active Substance: CARBOCYSTEINE
     Dosage: UNKNOWN DOSE AND FREQUENCY
     Route: 048
  9. ALFACALCIDOL [Concomitant]
     Active Substance: ALFACALCIDOL
     Dosage: UNKNOWN DOSE AND FREQUENCY
     Route: 048
  10. CEFTRIAXONE SODIUM HYDRATE [Concomitant]
     Active Substance: CEFTRIAXONE SODIUM
     Dosage: UNKNOWN DOSE AND FREQUENCY
     Route: 042
     Dates: start: 20190527, end: 20190603
  11. THEOPHYLLINE [Interacting]
     Active Substance: THEOPHYLLINE ANHYDROUS
     Indication: ASTHMA
     Route: 048
     Dates: end: 20190604
  12. NEXIUM [Concomitant]
     Active Substance: ESOMEPRAZOLE MAGNESIUM
     Dosage: UNKNOWN DOSE AND FREQUENCY
     Route: 048

REACTIONS (3)
  - Tachycardia [Recovering/Resolving]
  - Drug interaction [Unknown]
  - Hypokalaemia [Unknown]

NARRATIVE: CASE EVENT DATE: 20190530
